FAERS Safety Report 12344878 (Version 1)
Quarter: 2016Q2

REPORT INFORMATION
  Report Type: Spontaneous
  Country: US (occurrence: US)
  Receive Date: 20160507
  Receipt Date: 20160507
  Transmission Date: 20160815
  Serious: Yes (Other)
  Sender: FDA-Public Use
  Company Number: US-JNJFOC-20160328600

PATIENT
  Age: 38 Year
  Sex: Female

DRUGS (1)
  1. XARELTO [Suspect]
     Active Substance: RIVAROXABAN
     Indication: DEEP VEIN THROMBOSIS
     Route: 048
     Dates: start: 201312, end: 20140417

REACTIONS (3)
  - Internal haemorrhage [Unknown]
  - Haemorrhoidal haemorrhage [Recovering/Resolving]
  - Menorrhagia [Unknown]

NARRATIVE: CASE EVENT DATE: 20131230
